FAERS Safety Report 16887004 (Version 2)
Quarter: 2019Q4

REPORT INFORMATION
  Report Type: Spontaneous
  Country: US (occurrence: US)
  Receive Date: 20191004
  Receipt Date: 20191119
  Transmission Date: 20200122
  Serious: Yes (Hospitalization, Other)
  Sender: FDA-Public Use
  Company Number: US-ASTRAZENECA-2019SF39094

PATIENT
  Age: 19278 Day
  Sex: Male
  Weight: 78.9 kg

DRUGS (26)
  1. AMOXICILLIN. [Concomitant]
     Active Substance: AMOXICILLIN
     Indication: ANTIBIOTIC THERAPY
     Route: 065
     Dates: start: 200204, end: 201506
  2. COLCHICINE. [Concomitant]
     Active Substance: COLCHICINE
     Indication: GOUT
     Route: 065
     Dates: start: 200803, end: 200808
  3. VERAPAMIL [Concomitant]
     Active Substance: VERAPAMIL HYDROCHLORIDE
  4. VIOXX [Concomitant]
     Active Substance: ROFECOXIB
  5. PROPRANOLOL [Concomitant]
     Active Substance: PROPRANOLOL HYDROCHLORIDE
  6. FUROSEMIDE. [Concomitant]
     Active Substance: FUROSEMIDE
     Indication: DIURETIC THERAPY
     Route: 065
     Dates: start: 200906, end: 201309
  7. VITAMIN D [Concomitant]
     Active Substance: VITAMIN D NOS
  8. PRILOSEC OTC [Suspect]
     Active Substance: OMEPRAZOLE MAGNESIUM
     Indication: GASTROOESOPHAGEAL REFLUX DISEASE
     Route: 048
     Dates: start: 2003, end: 2015
  9. PRILOSEC OTC [Suspect]
     Active Substance: OMEPRAZOLE MAGNESIUM
     Indication: GASTROOESOPHAGEAL REFLUX DISEASE
     Route: 048
     Dates: start: 200309, end: 201512
  10. PREVACID 24 HR [Suspect]
     Active Substance: LANSOPRAZOLE
     Indication: GASTROOESOPHAGEAL REFLUX DISEASE
     Route: 065
     Dates: start: 2003, end: 2015
  11. PROVENTIL [Concomitant]
     Active Substance: ALBUTEROL
     Indication: INHALATION THERAPY
     Route: 065
     Dates: start: 201006, end: 201007
  12. HYDROCODONE [Concomitant]
     Active Substance: HYDROCODONE
     Indication: PAIN
     Route: 065
     Dates: start: 200206, end: 201605
  13. MEDROL [Concomitant]
     Active Substance: METHYLPREDNISOLONE
     Indication: STEROID THERAPY
     Route: 065
     Dates: start: 200111, end: 201307
  14. COZAAR [Concomitant]
     Active Substance: LOSARTAN POTASSIUM
     Route: 065
     Dates: start: 200705, end: 200708
  15. WARFARIN [Concomitant]
     Active Substance: WARFARIN
     Indication: ANTICOAGULANT THERAPY
     Route: 065
     Dates: start: 200206, end: 201405
  16. TUMS [Concomitant]
     Active Substance: CALCIUM CARBONATE
     Indication: ANTACID THERAPY
     Route: 065
  17. PEPTO-BISMOL [Concomitant]
     Active Substance: BISMUTH SUBSALICYLATE
     Indication: ANTACID THERAPY
     Route: 065
  18. NEXIUM 24HR [Suspect]
     Active Substance: ESOMEPRAZOLE MAGNESIUM
     Indication: GASTROOESOPHAGEAL REFLUX DISEASE
     Route: 048
     Dates: start: 201405, end: 201512
  19. INDOMETHACIN. [Concomitant]
     Active Substance: INDOMETHACIN
     Indication: ANALGESIC INTERVENTION SUPPORTIVE THERAPY
     Route: 065
     Dates: start: 200406, end: 201007
  20. ALLOPURINOL. [Concomitant]
     Active Substance: ALLOPURINOL
     Indication: GOUT
     Route: 065
     Dates: start: 200409, end: 201610
  21. RANITIDINE. [Concomitant]
     Active Substance: RANITIDINE
     Route: 065
     Dates: start: 201107
  22. LEVAQUIN [Concomitant]
     Active Substance: LEVOFLOXACIN
  23. NEXIUM 24HR [Suspect]
     Active Substance: ESOMEPRAZOLE MAGNESIUM
     Indication: GASTROOESOPHAGEAL REFLUX DISEASE
     Route: 048
     Dates: start: 2003, end: 2015
  24. PANTOPRAZOLE [Suspect]
     Active Substance: PANTOPRAZOLE
     Indication: GASTROOESOPHAGEAL REFLUX DISEASE
     Route: 065
     Dates: start: 201205, end: 201210
  25. PREVACID 24 HR [Suspect]
     Active Substance: LANSOPRAZOLE
     Indication: GASTROOESOPHAGEAL REFLUX DISEASE
     Route: 065
     Dates: start: 200905, end: 201512
  26. OXAPROZIN. [Concomitant]
     Active Substance: OXAPROZIN

REACTIONS (5)
  - Nephrogenic anaemia [Unknown]
  - Hyperparathyroidism secondary [Unknown]
  - Chronic kidney disease [Not Recovered/Not Resolved]
  - End stage renal disease [Not Recovered/Not Resolved]
  - Chronic kidney disease-mineral and bone disorder [Unknown]

NARRATIVE: CASE EVENT DATE: 20070501
